FAERS Safety Report 5999791-8 (Version None)
Quarter: 2008Q4

REPORT INFORMATION
  Report Type: 
  Country: None (occurrence: None)
  Receive Date: 20081215
  Receipt Date: 20071211
  Transmission Date: 20090506
  Serious: No
  Sender: FDA-Public Use
  Company Number: US-AMGEN-KDL182769

PATIENT
  Sex: Female

DRUGS (1)
  1. ENBREL [Suspect]
     Indication: RHEUMATOID ARTHRITIS
     Route: 058
     Dates: start: 20050803

REACTIONS (5)
  - ARTHRALGIA [None]
  - CHILLS [None]
  - PAIN IN EXTREMITY [None]
  - RHINORRHOEA [None]
  - TREMOR [None]
